FAERS Safety Report 8374284 (Version 4)
Quarter: 2013Q3

REPORT INFORMATION
  Report Type: Spontaneous
  Country: IE (occurrence: IE)
  Receive Date: 20120130
  Receipt Date: 20130805
  Transmission Date: 20140515
  Serious: Yes (Other)
  Sender: FDA-Public Use
  Company Number: IE-US-EMD SERONO, INC.-7108428

PATIENT
  Sex: Female

DRUGS (3)
  1. SAIZEN [Suspect]
     Indication: CUSHING^S SYNDROME
     Route: 058
     Dates: start: 20111220
  2. SAIZEN [Suspect]
     Indication: HYPOTHALAMO-PITUITARY DISORDER
  3. HYDROCORTISONE [Concomitant]
     Indication: CUSHING^S SYNDROME

REACTIONS (3)
  - Urinary tract infection [Recovered/Resolved]
  - Carpal tunnel syndrome [Recovered/Resolved]
  - Headache [Recovered/Resolved]
